FAERS Safety Report 6987906-4 (Version None)
Quarter: 2010Q3

REPORT INFORMATION
  Report Type: 
  Country: None (occurrence: None)
  Receive Date: 20100916
  Receipt Date: 20100906
  Transmission Date: 20110219
  Serious: Yes (Other)
  Sender: FDA-Public Use
  Company Number: FR-ABBOTT-10P-056-0668983-00

PATIENT
  Sex: Male

DRUGS (1)
  1. VERCYTE [Suspect]
     Indication: POLYCYTHAEMIA VERA
     Dates: start: 20000101

REACTIONS (1)
  - PANCYTOPENIA [None]
